FAERS Safety Report 7499744-7 (Version None)
Quarter: 2011Q2

REPORT INFORMATION
  Report Type: 
  Country: None (occurrence: None)
  Receive Date: 20110524
  Receipt Date: 20110512
  Transmission Date: 20111010
  Serious: Yes (Death, Hospitalization)
  Sender: FDA-Public Use
  Company Number: DE-ACTELION-A-US2011-47849

PATIENT

DRUGS (6)
  1. OXYGEN [Concomitant]
  2. VENTAVIS [Suspect]
     Indication: PULMONARY ARTERIAL HYPERTENSION
     Dosage: 5 ?G, 6 TIMES /DAY
     Route: 055
     Dates: start: 20080501, end: 20110412
  3. REVATIO [Concomitant]
  4. SALBUHEXAL [Concomitant]
  5. ATROVENT [Concomitant]
  6. TORSEMIDE [Concomitant]

REACTIONS (12)
  - PLEURAL EFFUSION [None]
  - DYSPNOEA [None]
  - CARDIAC ARREST [None]
  - EMPHYSEMA [None]
  - RIGHT VENTRICULAR FAILURE [None]
  - SCROTAL OEDEMA [None]
  - DISEASE PROGRESSION [None]
  - PULMONARY ARTERIAL HYPERTENSION [None]
  - RESUSCITATION [None]
  - RENAL FUNCTION TEST ABNORMAL [None]
  - OEDEMA PERIPHERAL [None]
  - ASCITES [None]
